FAERS Safety Report 9798992 (Version 2)
Quarter: 2014Q1

REPORT INFORMATION
  Report Type: Spontaneous
  Country: US (occurrence: US)
  Receive Date: 20140106
  Receipt Date: 20140106
  Transmission Date: 20141002
  Serious: No
  Sender: FDA-Public Use
  Company Number: US-GILEAD-2010-0032296

PATIENT
  Age: 51 Year
  Sex: Male
  Weight: 86.18 kg

DRUGS (12)
  1. LETAIRIS [Suspect]
     Indication: PULMONARY ARTERIAL HYPERTENSION
     Route: 048
     Dates: start: 20100914
  2. TYVASO [Concomitant]
  3. VIAGRA [Concomitant]
  4. METOPROLOL [Concomitant]
  5. LASIX [Concomitant]
  6. METOLAZONE [Concomitant]
  7. ASPIRIN [Concomitant]
  8. SIMVASTATIN [Concomitant]
  9. HUMALOG [Concomitant]
  10. LANTUS [Concomitant]
  11. PRILOSEC [Concomitant]
  12. SALMON OIL [Concomitant]

REACTIONS (1)
  - Oedema [Unknown]
